FAERS Safety Report 8922562 (Version 1)
Quarter: 2012Q4

REPORT INFORMATION
  Report Type: 
  Country: FR (occurrence: FR)
  Receive Date: 20121123
  Receipt Date: 20121123
  Transmission Date: 20130627
  Serious: Yes (Hospitalization)
  Sender: FDA-Public Use
  Company Number: FR-ROCHE-1154707

PATIENT
  Age: 88 Year
  Sex: Female

DRUGS (3)
  1. ROCEPHINE [Suspect]
     Indication: PRODUCT USED FOR UNKNOWN INDICATION
     Route: 065
     Dates: start: 20120802, end: 20120813
  2. AUGMENTINE [Suspect]
     Indication: PRODUCT USED FOR UNKNOWN INDICATION
     Route: 065
     Dates: start: 20120730, end: 20120802
  3. GENTAMICIN [Concomitant]
     Route: 065
     Dates: start: 20120802, end: 20120809

REACTIONS (2)
  - Anaemia [Recovered/Resolved]
  - Agranulocytosis [Recovered/Resolved]
